APPROVED DRUG PRODUCT: TRAZODONE HYDROCHLORIDE
Active Ingredient: TRAZODONE HYDROCHLORIDE
Strength: 100MG
Dosage Form/Route: TABLET;ORAL
Application: A070492 | Product #001
Applicant: USL PHARMA INC
Approved: Apr 29, 1987 | RLD: No | RS: No | Type: DISCN